FAERS Safety Report 8540699-1 (Version None)
Quarter: 2012Q3

REPORT INFORMATION
  Report Type: 
  Country: None (occurrence: None)
  Receive Date: 20120726
  Receipt Date: 20120717
  Transmission Date: 20120928
  Serious: Yes (Life-Threatening, Hospitalization)
  Sender: FDA-Public Use
  Company Number: DE-TEVA-347536GER

PATIENT
  Sex: Female
  Weight: 77 kg

DRUGS (6)
  1. PACLITAXEL [Suspect]
     Indication: BREAST CANCER
     Route: 042
     Dates: start: 20120507, end: 20120709
  2. THYRANOJOD [Concomitant]
  3. DOXORUBICIN HCL [Suspect]
     Indication: BREAST CANCER
     Route: 042
     Dates: start: 20120507, end: 20120709
  4. HERCEPTIN [Suspect]
     Indication: BREAST CANCER
     Route: 042
     Dates: start: 20120507, end: 20120709
  5. LAPATINIB [Suspect]
     Indication: BREAST CANCER
     Dosage: 750 MILLIGRAM;
     Route: 048
     Dates: start: 20120507
  6. ACETAMINOPHEN [Concomitant]
     Dates: start: 20120706, end: 20120707

REACTIONS (6)
  - PYREXIA [None]
  - MULTI-ORGAN DISORDER [None]
  - INTERSTITIAL LUNG DISEASE [None]
  - PULMONARY MYCOSIS [None]
  - RESPIRATORY FAILURE [None]
  - PNEUMONIA VIRAL [None]
